FAERS Safety Report 15525156 (Version 1)
Quarter: 2018Q4

REPORT INFORMATION
  Report Type: Spontaneous
  Country: FR (occurrence: FR)
  Receive Date: 20181019
  Receipt Date: 20181019
  Transmission Date: 20190205
  Serious: Yes (Hospitalization)
  Sender: FDA-Public Use
  Company Number: FR-TEVA-2018-FR-965907

PATIENT
  Age: 35 Year
  Sex: Female
  Weight: 74 kg

DRUGS (3)
  1. TRIUMEQ [Concomitant]
     Active Substance: ABACAVIR SULFATE\DOLUTEGRAVIR SODIUM\LAMIVUDINE
     Indication: HIV INFECTION
     Dosage: 1 DOSAGE FORMS DAILY;
     Route: 048
     Dates: start: 201702
  2. ANDROCUR [Suspect]
     Active Substance: CYPROTERONE ACETATE
     Indication: TRANSGENDER HORMONAL THERAPY
     Dosage: 100 MILLIGRAM DAILY;
     Route: 048
     Dates: end: 2018
  3. FEMSEPT EVO 50 MG / 7 MG / 24H [Suspect]
     Active Substance: ESTRADIOL\LEVONORGESTREL
     Indication: TRANSGENDER HORMONAL THERAPY
     Dosage: 50 MICROGRAM DAILY;
     Route: 062
     Dates: end: 2018

REACTIONS (1)
  - Acute coronary syndrome [Recovered/Resolved with Sequelae]

NARRATIVE: CASE EVENT DATE: 20180408
